FAERS Safety Report 24187515 (Version 1)
Quarter: 2024Q3

REPORT INFORMATION
  Report Type: Spontaneous
  Country: CG (occurrence: CG)
  Receive Date: 20240808
  Receipt Date: 20240808
  Transmission Date: 20241017
  Serious: Yes (Hospitalization)
  Sender: RANBAXY
  Company Number: CG-SUN PHARMACEUTICAL INDUSTRIES LTD-2024R1-461292

PATIENT
  Sex: Female
  Weight: 1.85 kg

DRUGS (5)
  1. CEFTRIAXONE [Suspect]
     Active Substance: CEFTRIAXONE\CEFTRIAXONE SODIUM
     Indication: Ebola disease
     Dosage: UNK
     Route: 064
  2. OMEPRAZOLE [Suspect]
     Active Substance: OMEPRAZOLE
     Indication: Ebola disease
     Dosage: UNK
     Route: 064
  3. ACETAMINOPHEN [Suspect]
     Active Substance: ACETAMINOPHEN
     Indication: Ebola disease
     Dosage: UNK
     Route: 064
  4. ALBENDAZOLE [Suspect]
     Active Substance: ALBENDAZOLE
     Indication: Ebola disease
     Dosage: UNK
     Route: 064
  5. ARTESUNATE [Suspect]
     Active Substance: ARTESUNATE
     Indication: Ebola disease
     Dosage: UNK
     Route: 064

REACTIONS (3)
  - Premature baby [Unknown]
  - Low birth weight baby [Unknown]
  - Foetal exposure during pregnancy [Unknown]
